FAERS Safety Report 24970075 (Version 2)
Quarter: 2025Q2

REPORT INFORMATION
  Report Type: Spontaneous
  Country: US (occurrence: US)
  Receive Date: 20250214
  Receipt Date: 20250421
  Transmission Date: 20250716
  Serious: Yes (Hospitalization)
  Sender: NOVARTIS
  Company Number: US-002147023-NVSC2025US022619

PATIENT
  Age: 37 Year
  Sex: Male

DRUGS (1)
  1. COSENTYX [Suspect]
     Active Substance: SECUKINUMAB
     Indication: Psoriasis
     Dosage: 300 MG/KG, QW
     Route: 058
     Dates: start: 20241211

REACTIONS (3)
  - Anxiety [Unknown]
  - Dizziness [Unknown]
  - Brain fog [Unknown]

NARRATIVE: CASE EVENT DATE: 20250124
